FAERS Safety Report 7096303-5 (Version None)
Quarter: 2010Q4

REPORT INFORMATION
  Report Type: 
  Country: None (occurrence: None)
  Receive Date: 20101111
  Receipt Date: 20080616
  Transmission Date: 20110411
  Serious: Yes (Life-Threatening)
  Sender: FDA-Public Use
  Company Number: US-KINGPHARMUSA00001-K200800686

PATIENT
  Age: 54 Year
  Sex: Male
  Weight: 54.422 kg

DRUGS (3)
  1. EPIPEN [Suspect]
     Indication: ALLERGY TO ARTHROPOD STING
     Dosage: TWO EPIPENS
     Route: 030
     Dates: start: 20080612, end: 20080612
  2. ANALGESICS [Concomitant]
     Indication: CANCER PAIN
  3. STOMATOLOGICALS, MOUTH PREPARATIONS [Concomitant]
     Indication: GASTRIC DISORDER

REACTIONS (1)
  - DRUG INEFFECTIVE [None]
